FAERS Safety Report 13143371 (Version 2)
Quarter: 2017Q1

REPORT INFORMATION
  Report Type: Spontaneous
  Country: US (occurrence: US)
  Receive Date: 20170124
  Receipt Date: 20170322
  Transmission Date: 20170428
  Serious: Yes (Other)
  Sender: FDA-Public Use
  Company Number: US-PFIZER INC-2017028128

PATIENT
  Age: 73 Year
  Sex: Male
  Weight: 86 kg

DRUGS (2)
  1. NEURONTIN [Suspect]
     Active Substance: GABAPENTIN
     Indication: NEUROPATHY PERIPHERAL
     Dosage: UNK
  2. GABAPENTIN. [Suspect]
     Active Substance: GABAPENTIN
     Indication: NEUROPATHY PERIPHERAL
     Dosage: 300 MG DAILY ( 100 MG, TWO IN THE MORNING, ONE AT NIGHT)

REACTIONS (9)
  - Fatigue [Not Recovered/Not Resolved]
  - Cataract [Unknown]
  - Somnolence [Not Recovered/Not Resolved]
  - Product use issue [Unknown]
  - Balance disorder [Recovering/Resolving]
  - Diplopia [Not Recovered/Not Resolved]
  - Fall [Unknown]
  - Arthropathy [Unknown]
  - Memory impairment [Not Recovered/Not Resolved]

NARRATIVE: CASE EVENT DATE: 2015
